FAERS Safety Report 21754432 (Version 1)
Quarter: 2022Q4

REPORT INFORMATION
  Report Type: Spontaneous
  Country: GB (occurrence: GB)
  Receive Date: 20221220
  Receipt Date: 20221220
  Transmission Date: 20230112
  Serious: Yes (Other)
  Sender: FDA-Public Use
  Company Number: None

PATIENT
  Sex: Male

DRUGS (7)
  1. TOFACITINIB CITRATE [Suspect]
     Active Substance: TOFACITINIB CITRATE
  2. AMLODIPINE [Concomitant]
     Active Substance: AMLODIPINE BESYLATE
  3. CODEINE [Concomitant]
     Active Substance: CODEINE
  4. INDAPAMIDE [Concomitant]
     Active Substance: INDAPAMIDE
  5. LOSARTAN [Concomitant]
     Active Substance: LOSARTAN
  6. MEBEVERINE [Concomitant]
     Active Substance: MEBEVERINE
  7. MESALAMINE [Concomitant]
     Active Substance: MESALAMINE

REACTIONS (3)
  - Squamous cell carcinoma [Recovered/Resolved]
  - Squamous cell carcinoma of head and neck [Recovered/Resolved]
  - Squamous cell carcinoma of skin [Recovered/Resolved]
